FAERS Safety Report 10382029 (Version 1)
Quarter: 2014Q1

REPORT INFORMATION
  Report Type: Spontaneous
  Country: US (occurrence: None)
  Receive Date: 20140306
  Receipt Date: 20140306
  Transmission Date: 20141002
  Serious: Yes (Other)
  Sender: FDA-Public Use
  Company Number: 163-21880-13091534

PATIENT
  Age: 61 Year
  Sex: Female
  Weight: 62.14 kg

DRUGS (7)
  1. REVLIMID (LENALIDOMIDE) (25 MILLIGRAM, CAPSULES) [Suspect]
     Indication: PLASMA CELL MYELOMA
     Dosage: 14 IN 21D
     Dates: start: 20130823
  2. ACYCLOVIR (ACICLOVIR) [Concomitant]
  3. ALLOPURINOL (ALLOPURINOL) [Concomitant]
  4. BABY ASPIRIN (ACETYLSALICYLIC ACID) [Concomitant]
  5. DEXAMETHASONE (DEXAMETHASONE) [Concomitant]
  6. PROCHORPERAZINE (PROCHLORPERAZINE) [Suspect]
  7. VELCADE (BORTEZOMIB) [Concomitant]

REACTIONS (2)
  - Sensory disturbance [None]
  - Anxiety [None]
